FAERS Safety Report 25801035 (Version 2)
Quarter: 2025Q3

REPORT INFORMATION
  Report Type: Report from Study
  Country: GB (occurrence: GB)
  Receive Date: 20250915
  Receipt Date: 20250919
  Transmission Date: 20251021
  Serious: Yes (Other)
  Sender: SAMSUNG BIOEPIS
  Company Number: GB-SAMSUNG BIOEPIS-SB-2025-30547

PATIENT
  Age: 61 Year
  Sex: Male

DRUGS (2)
  1. IMRALDI [Suspect]
     Active Substance: ADALIMUMAB
     Indication: Psoriasis
     Dosage: 40MG/0.8ML;
     Route: 058
  2. IMRALDI [Suspect]
     Active Substance: ADALIMUMAB
     Dosage: 40MG/0.8ML;
     Route: 058

REACTIONS (1)
  - Glomerulonephritis membranous [Unknown]
